FAERS Safety Report 19304959 (Version 1)
Quarter: 2021Q2

REPORT INFORMATION
  Report Type: Spontaneous
  Country: US (occurrence: US)
  Receive Date: 20210526
  Receipt Date: 20210526
  Transmission Date: 20210717
  Serious: Yes (Other)
  Sender: FDA-Public Use
  Company Number: US-CLOVIS ONCOLOGY-CLO-2021-000532

PATIENT
  Sex: Female

DRUGS (2)
  1. RUBRACA [Suspect]
     Active Substance: RUCAPARIB CAMSYLATE
     Dosage: 300 MILLIGRAM, BID
     Route: 048
     Dates: start: 202103, end: 202104
  2. RUBRACA [Suspect]
     Active Substance: RUCAPARIB CAMSYLATE
     Indication: ENDOMETRIAL CANCER
     Dosage: 600 MILLIGRAM, BID
     Dates: start: 20210316

REACTIONS (11)
  - Taste disorder [Recovering/Resolving]
  - Dehydration [Recovered/Resolved]
  - Feeling hot [Recovering/Resolving]
  - Constipation [Recovered/Resolved]
  - Decreased appetite [Recovering/Resolving]
  - Malignant neoplasm progression [Not Recovered/Not Resolved]
  - Anaemia [Recovered/Resolved]
  - Weight decreased [Unknown]
  - Tumour pain [Not Recovered/Not Resolved]
  - Therapeutic response unexpected [Unknown]
  - Off label use [Unknown]
